FAERS Safety Report 5850221-6 (Version None)
Quarter: 2008Q3

REPORT INFORMATION
  Report Type: 
  Country: None (occurrence: None)
  Receive Date: 20080819
  Receipt Date: 20080812
  Transmission Date: 20090109
  Serious: Yes (Other)
  Sender: FDA-Public Use
  Company Number: US-JNJCH-2008021288

PATIENT
  Sex: Female

DRUGS (1)
  1. BENADRYL ALLERGY + SINUS HEADACHE W/PE [Suspect]
     Indication: HYPERSENSITIVITY
     Dosage: TEXT:2 PILLS 3X DAILY
     Route: 048

REACTIONS (2)
  - DRUG INEFFECTIVE [None]
  - MEDICATION TAMPERING [None]
